FAERS Safety Report 14321080 (Version 1)
Quarter: 2017Q4

REPORT INFORMATION
  Report Type: Spontaneous
  Country: US (occurrence: US)
  Receive Date: 20171223
  Receipt Date: 20171223
  Transmission Date: 20180321
  Serious: Yes (Death, Other)
  Sender: FDA-Public Use
  Company Number: US-NOVOPROD-577595

PATIENT
  Age: 34 Year
  Sex: Female
  Weight: 59.86 kg

DRUGS (4)
  1. NOVOLOG [Suspect]
     Active Substance: INSULIN ASPART
     Indication: TYPE 1 DIABETES MELLITUS
     Dosage: SLIDING SCALE WITH MEALS
     Route: 058
  2. VICTOZA [Suspect]
     Active Substance: LIRAGLUTIDE
     Indication: WEIGHT DECREASED
     Dosage: 0.6 MG, QD
     Route: 058
     Dates: start: 20170322, end: 20170327
  3. VICTOZA [Suspect]
     Active Substance: LIRAGLUTIDE
     Dosage: UNK
     Route: 058
     Dates: start: 20171207
  4. LANTUS [Concomitant]
     Active Substance: INSULIN GLARGINE
     Indication: TYPE 1 DIABETES MELLITUS
     Route: 058

REACTIONS (8)
  - Abdominal pain [Recovered/Resolved]
  - Blood glucose increased [Unknown]
  - Food intolerance [Fatal]
  - Impaired gastric emptying [Recovered/Resolved]
  - Intentional product misuse [Unknown]
  - Vomiting [Fatal]
  - Diarrhoea [Recovered/Resolved]
  - Diarrhoea [Fatal]

NARRATIVE: CASE EVENT DATE: 201703
